FAERS Safety Report 24716210 (Version 3)
Quarter: 2025Q1

REPORT INFORMATION
  Report Type: Spontaneous
  Country: AU (occurrence: AU)
  Receive Date: 20241210
  Receipt Date: 20250117
  Transmission Date: 20250409
  Serious: Yes (Death, Hospitalization, Other)
  Sender: ADC THERAPEUTICS
  Company Number: AU-BIOVITRUM-2024-AU-015447

PATIENT
  Age: 80 Year
  Sex: Male

DRUGS (2)
  1. ZYNLONTA [Suspect]
     Active Substance: LONCASTUXIMAB TESIRINE-LPYL
     Indication: Diffuse large B-cell lymphoma
     Dosage: 6 MG, Q3WK
     Route: 042
     Dates: start: 20240318, end: 20240318
  2. ZYNLONTA [Suspect]
     Active Substance: LONCASTUXIMAB TESIRINE-LPYL
     Dosage: 6 MG, Q3WK
     Route: 042
     Dates: start: 20240830, end: 20240830

REACTIONS (6)
  - COVID-19 [Fatal]
  - Hypogammaglobulinaemia [Fatal]
  - Delirium [Unknown]
  - Atrial fibrillation [Unknown]
  - Pleural effusion [Unknown]
  - Condition aggravated [Unknown]

NARRATIVE: CASE EVENT DATE: 20240923
